FAERS Safety Report 5122179-9 (Version None)
Quarter: 2006Q4

REPORT INFORMATION
  Report Type: 
  Country: None (occurrence: None)
  Receive Date: 20061006
  Receipt Date: 20060926
  Transmission Date: 20070319
  Serious: Yes (Congenital Anomaly)
  Sender: FDA-Public Use
  Company Number: FR-ABBOTT-06P-056-0345018-00

PATIENT
  Age: 30 Month
  Sex: Male

DRUGS (1)
  1. DEPAKENE [Suspect]
     Indication: DRUG EXPOSURE DURING PREGNANCY

REACTIONS (8)
  - DEVELOPMENTAL DELAY [None]
  - DYSPHASIA [None]
  - HYPOTHALAMO-PITUITARY DISORDERS [None]
  - HYPOTONIA [None]
  - NEURODEVELOPMENTAL DISORDER [None]
  - OBESITY [None]
  - PSYCHOMOTOR RETARDATION [None]
  - RETRACTED NIPPLE [None]
